FAERS Safety Report 6389620-5 (Version None)
Quarter: 2009Q4

REPORT INFORMATION
  Report Type: 
  Country: None (occurrence: None)
  Receive Date: 20091006
  Receipt Date: 20090928
  Transmission Date: 20100525
  Serious: Yes (Death)
  Sender: FDA-Public Use
  Company Number: PHEH2009US12461

PATIENT
  Age: 55 Year
  Sex: Male

DRUGS (1)
  1. FORADIL [Suspect]
     Indication: ASTHMA

REACTIONS (1)
  - MYOCARDIAL INFARCTION [None]
